FAERS Safety Report 22263566 (Version 1)
Quarter: 2023Q2

REPORT INFORMATION
  Report Type: Spontaneous
  Country: US (occurrence: US)
  Receive Date: 20230428
  Receipt Date: 20230428
  Transmission Date: 20230722
  Serious: Yes (Other)
  Sender: FDA-Public Use
  Company Number: US-APOTEX-2023AP007573

PATIENT
  Age: 24 Year
  Sex: Male

DRUGS (2)
  1. FENTANYL [Suspect]
     Active Substance: FENTANYL
     Indication: Product used for unknown indication
     Dosage: UNK
     Route: 065
  2. HEROIN [Suspect]
     Active Substance: DIAMORPHINE
     Indication: Product used for unknown indication
     Dosage: UNK
     Route: 065

REACTIONS (15)
  - Cervical vertebral fracture [Unknown]
  - Apnoea [Recovered/Resolved]
  - Brain fog [Unknown]
  - Thinking abnormal [Unknown]
  - Road traffic accident [Unknown]
  - Splenic injury [Unknown]
  - Respiratory rate decreased [Unknown]
  - Oxygen saturation decreased [Unknown]
  - Illness [Unknown]
  - Anxiety [Unknown]
  - Insomnia [Unknown]
  - Heart rate decreased [Unknown]
  - Blood pressure decreased [Unknown]
  - Impaired driving ability [Unknown]
  - Nausea [Unknown]
